FAERS Safety Report 9089055 (Version 1)
Quarter: 2013Q1

REPORT INFORMATION
  Report Type: Report from Study
  Country: US (occurrence: US)
  Receive Date: 20130218
  Receipt Date: 20130218
  Transmission Date: 20140127
  Serious: No
  Sender: FDA-Public Use
  Company Number: US-ABBOTT-12P-163-0920535-00

PATIENT
  Age: 44 Year
  Sex: Female
  Weight: 106.69 kg

DRUGS (2)
  1. SIMCOR 500MG/20MG [Suspect]
     Indication: BLOOD CHOLESTEROL INCREASED
     Dosage: 500/20 MG
     Dates: start: 20120130
  2. SIMCOR 500MG/20MG [Suspect]
     Indication: LOW DENSITY LIPOPROTEIN INCREASED

REACTIONS (4)
  - Flushing [Not Recovered/Not Resolved]
  - Pruritus [Not Recovered/Not Resolved]
  - Paraesthesia [Not Recovered/Not Resolved]
  - Skin warm [Not Recovered/Not Resolved]
